FAERS Safety Report 11432064 (Version 1)
Quarter: 2015Q3

REPORT INFORMATION
  Report Type: Spontaneous
  Country: KR (occurrence: KR)
  Receive Date: 20150828
  Receipt Date: 20150828
  Transmission Date: 20151125
  Serious: Yes (Other)
  Sender: FDA-Public Use
  Company Number: KR-CEDAR PHARMACEUTICALS-2015CDR00006

PATIENT
  Age: 13 Year
  Sex: Female
  Weight: 67.8 kg

DRUGS (4)
  1. METHIMAZOLE. [Suspect]
     Active Substance: METHIMAZOLE
     Dosage: 7.5 MG, 1X/DAY
  2. METHIMAZOLE. [Suspect]
     Active Substance: METHIMAZOLE
     Dosage: 5 MG, 1X/DAY
  3. METHIMAZOLE. [Suspect]
     Active Substance: METHIMAZOLE
     Indication: BASEDOW^S DISEASE
     Dosage: 7.5 MG (0.25 MG/KG/DAY), 2X/DAY
  4. METHIMAZOLE. [Suspect]
     Active Substance: METHIMAZOLE
     Dosage: 10 MG, 1X/DAY

REACTIONS (2)
  - Blood creatine phosphokinase increased [Recovered/Resolved]
  - Myalgia [Recovered/Resolved]
